FAERS Safety Report 13157529 (Version 3)
Quarter: 2018Q1

REPORT INFORMATION
  Report Type: Spontaneous
  Country: CA (occurrence: CA)
  Receive Date: 20170127
  Receipt Date: 20180122
  Transmission Date: 20180508
  Serious: Yes (Life-Threatening, Hospitalization)
  Sender: FDA-Public Use
  Company Number: CA-ROCHE-1880896

PATIENT
  Age: 42 Year
  Sex: Male

DRUGS (21)
  1. BUDESONIDE. [Concomitant]
     Active Substance: BUDESONIDE
  2. APO-CIPROFLOX [Suspect]
     Active Substance: CIPROFLOXACIN
     Indication: INFLUENZA LIKE ILLNESS
     Route: 048
  3. CICLESONIDE [Concomitant]
     Active Substance: CICLESONIDE
  4. AZTREONAM. [Concomitant]
     Active Substance: AZTREONAM
     Indication: PRODUCT USED FOR UNKNOWN INDICATION
     Route: 065
  5. MEROPENEM. [Suspect]
     Active Substance: MEROPENEM
     Indication: INFECTIVE PULMONARY EXACERBATION OF CYSTIC FIBROSIS
     Route: 042
  6. MONTELUKAST [Concomitant]
     Active Substance: MONTELUKAST SODIUM
     Route: 065
  7. APO-TOBRAMYCIN [Suspect]
     Active Substance: TOBRAMYCIN
     Indication: INFECTIVE PULMONARY EXACERBATION OF CYSTIC FIBROSIS
     Route: 057
  8. DORNAVAC [Concomitant]
     Route: 065
  9. HYDROCORTISONE. [Concomitant]
     Active Substance: HYDROCORTISONE
  10. NAT-OSELTAMIVIR [Suspect]
     Active Substance: OSELTAMIVIR
     Indication: INFLUENZA LIKE ILLNESS
     Route: 048
  11. XOLAIR [Concomitant]
     Active Substance: OMALIZUMAB
     Route: 058
  12. APO-CIPROFLOX [Suspect]
     Active Substance: CIPROFLOXACIN
     Indication: INFECTIVE PULMONARY EXACERBATION OF CYSTIC FIBROSIS
  13. INSULIN [Concomitant]
     Active Substance: INSULIN NOS
  14. APO-TOBRAMYCIN [Suspect]
     Active Substance: TOBRAMYCIN
     Indication: INFLUENZA LIKE ILLNESS
     Route: 042
  15. AZITHROMYCIN ANHYDROUS. [Concomitant]
     Active Substance: AZITHROMYCIN ANHYDROUS
  16. BUDESONIDE/FORMOTEROL [Concomitant]
     Active Substance: BUDESONIDE\FORMOTEROL
     Indication: PRODUCT USED FOR UNKNOWN INDICATION
     Route: 065
  17. TAMIFLU [Suspect]
     Active Substance: OSELTAMIVIR PHOSPHATE
     Indication: INFLUENZA LIKE ILLNESS
     Route: 048
  18. VANCOMYCIN [Suspect]
     Active Substance: VANCOMYCIN
     Indication: INFECTIVE PULMONARY EXACERBATION OF CYSTIC FIBROSIS
     Route: 042
  19. CAYSTON [Concomitant]
     Active Substance: AZTREONAM
  20. DORNASE ALFA. [Concomitant]
     Active Substance: DORNASE ALFA
     Route: 065
  21. PANCRELIPASE. [Concomitant]
     Active Substance: PANCRELIPASE
     Route: 065

REACTIONS (4)
  - Toxic epidermal necrolysis [Recovered/Resolved]
  - Sepsis [Recovered/Resolved]
  - Rash morbilliform [Recovered/Resolved]
  - Staphylococcal infection [Recovered/Resolved]
